FAERS Safety Report 4513824-7 (Version None)
Quarter: 2004Q4

REPORT INFORMATION
  Report Type: 
  Country: None (occurrence: None)
  Receive Date: 20041130
  Receipt Date: 20040909
  Transmission Date: 20050328
  Serious: No
  Sender: FDA-Public Use
  Company Number: US-GLAXOSMITHKLINE-A0525077A

PATIENT
  Age: 31 Year
  Sex: Female
  Weight: 67.3 kg

DRUGS (2)
  1. WELLBUTRIN XL [Suspect]
     Indication: DEPRESSION
     Dosage: 300MG UNKNOWN
     Route: 048
     Dates: start: 20040501, end: 20040901
  2. NO CONCURRENT MEDICATION [Concomitant]

REACTIONS (1)
  - TOOTHACHE [None]
